FAERS Safety Report 21640466 (Version 1)
Quarter: 2022Q4

REPORT INFORMATION
  Report Type: Spontaneous
  Country: US (occurrence: US)
  Receive Date: 20221124
  Receipt Date: 20221124
  Transmission Date: 20230113
  Serious: Yes (Hospitalization)
  Sender: FDA-Public Use
  Company Number: US-AMGEN-USASP2022201277

PATIENT
  Age: 85 Year
  Sex: Male

DRUGS (1)
  1. IMLYGIC [Suspect]
     Active Substance: TALIMOGENE LAHERPAREPVEC
     Indication: Product used for unknown indication
     Dosage: UNK, 1X VIAL 100 MILLION PFU PER ML
     Route: 065

REACTIONS (2)
  - Gallbladder operation [Unknown]
  - Post procedural complication [Not Recovered/Not Resolved]

NARRATIVE: CASE EVENT DATE: 20221101
